FAERS Safety Report 14481965 (Version 5)
Quarter: 2021Q4

REPORT INFORMATION
  Report Type: Spontaneous
  Country: GB (occurrence: GB)
  Receive Date: 20180202
  Receipt Date: 20211014
  Transmission Date: 20220303
  Serious: Yes (Life-Threatening, Hospitalization, Other)
  Sender: FDA-Public Use
  Company Number: GB-GSKJP-B0326939A

PATIENT
  Age: 66 Year
  Sex: Male
  Weight: 77.4 kg

DRUGS (5)
  1. CISPLATIN [Suspect]
     Active Substance: CISPLATIN
     Indication: Squamous cell carcinoma of head and neck
     Dosage: 100 MG/M2 THERAPY END FLAG: DRUG STILL BEING ADMINISTERED
     Route: 042
     Dates: start: 20040311
  2. DICLOFENAC [Suspect]
     Active Substance: DICLOFENAC
     Indication: Pain
     Dosage: 150 MILLIGRAM DAILY; 150 MILLIGRAM, QD, (50 MG, TID)
     Route: 048
  3. DEXAMETHASONE [Suspect]
     Active Substance: DEXAMETHASONE
     Indication: Nausea
     Dosage: 6 MILLIGRAM DAILY;
     Route: 048
     Dates: start: 20040311, end: 20040314
  4. DEXAMETHASONE [Suspect]
     Active Substance: DEXAMETHASONE
     Dosage: 6 MILLIGRAM DAILY;
     Route: 048
     Dates: start: 20040311, end: 20040314
  5. LAPATINIB DITOSYLATE [Suspect]
     Active Substance: LAPATINIB DITOSYLATE
     Indication: Squamous cell carcinoma of head and neck
     Dosage: 500 MG THERAPY END FLAG: NOT APPLICABLE.
     Route: 048
     Dates: start: 20040304, end: 20040313

REACTIONS (3)
  - Duodenal ulcer perforation [Recovered/Resolved]
  - Haematemesis [Unknown]
  - Abdominal pain [Unknown]

NARRATIVE: CASE EVENT DATE: 20040314
